FAERS Safety Report 5856844-2 (Version None)
Quarter: 2008Q3

REPORT INFORMATION
  Report Type: 
  Country: None (occurrence: None)
  Receive Date: 20080825
  Receipt Date: 20080815
  Transmission Date: 20090109
  Serious: Yes (Other)
  Sender: FDA-Public Use
  Company Number: GB-PFIZER INC-2008068995

PATIENT
  Age: 72 Year
  Sex: Male
  Weight: 90 kg

DRUGS (6)
  1. ATORVASTATIN [Suspect]
     Dates: start: 20071201, end: 20080501
  2. ACETYLSALICYLIC ACID SRT [Concomitant]
  3. CLOPIDOGREL [Concomitant]
  4. GLICLAZIDE [Concomitant]
  5. METFORMIN [Concomitant]
  6. RAMIPRIL [Concomitant]

REACTIONS (3)
  - ARTHRITIS REACTIVE [None]
  - JOINT STABILISATION [None]
  - PAIN [None]
